FAERS Safety Report 23156759 (Version 3)
Quarter: 2023Q4

REPORT INFORMATION
  Report Type: Spontaneous
  Country: US (occurrence: None)
  Receive Date: 20231108
  Receipt Date: 20231228
  Transmission Date: 20240110
  Serious: Yes (Hospitalization, Other)
  Sender: FDA-Public Use
  Company Number: US-ROCHE-3449440

PATIENT
  Age: 6 Year
  Sex: Female
  Weight: 17.706 kg

DRUGS (4)
  1. EVRYSDI [Suspect]
     Active Substance: RISDIPLAM
     Indication: Spinal muscular atrophy
  2. VANCOMYCIN [Concomitant]
     Active Substance: VANCOMYCIN
  3. CEFDINIR [Concomitant]
     Active Substance: CEFDINIR
  4. AMOXICILLIN [Concomitant]
     Active Substance: AMOXICILLIN

REACTIONS (8)
  - Sapovirus infection [Recovered/Resolved]
  - Lethargy [Unknown]
  - Constipation [Unknown]
  - Respiratory syncytial virus infection [Unknown]
  - Pneumonia [Unknown]
  - Atelectasis [Unknown]
  - Enterovirus test positive [Unknown]
  - Human rhinovirus test positive [Unknown]

NARRATIVE: CASE EVENT DATE: 20230811
